FAERS Safety Report 7357702-7 (Version None)
Quarter: 2011Q1

REPORT INFORMATION
  Report Type: 
  Country: None (occurrence: None)
  Receive Date: 20110307
  Receipt Date: 20100715
  Transmission Date: 20110831
  Serious: No
  Sender: FDA-Public Use
  Company Number: AEUSA201000265

PATIENT
  Age: 48 Year
  Sex: Male

DRUGS (2)
  1. PROLASTIN [Concomitant]
  2. PROLASTIN-C [Suspect]
     Indication: PANNICULITIS
     Dosage: 7400 MG, QW, IV
     Route: 042
     Dates: start: 20100514

REACTIONS (4)
  - PRODUCT SUBSTITUTION ISSUE [None]
  - PRODUCT FORMULATION ISSUE [None]
  - DRUG INEFFECTIVE [None]
  - RASH [None]
